FAERS Safety Report 24617511 (Version 1)
Quarter: 2024Q4

REPORT INFORMATION
  Report Type: Spontaneous
  Country: IE (occurrence: IE)
  Receive Date: 20241114
  Receipt Date: 20241114
  Transmission Date: 20250114
  Serious: Yes (Death)
  Sender: ASTELLAS
  Company Number: IE-ASTELLAS-2024-AER-018283

PATIENT
  Age: 71 Year
  Sex: Male

DRUGS (1)
  1. PADCEV [Suspect]
     Active Substance: ENFORTUMAB VEDOTIN\ENFORTUMAB VEDOTIN-EJFV
     Indication: Product used for unknown indication
     Dosage: 1 MONTH COMPLETED
     Route: 065

REACTIONS (1)
  - Diabetes mellitus [Fatal]
